FAERS Safety Report 4486341-0 (Version None)
Quarter: 2004Q4

REPORT INFORMATION
  Report Type: 
  Country: None (occurrence: None)
  Receive Date: 20041022
  Receipt Date: 20041007
  Transmission Date: 20050328
  Serious: Yes (Death)
  Sender: FDA-Public Use
  Company Number: 2004S1003016

PATIENT
  Age: 62 Year
  Sex: Female

DRUGS (16)
  1. CLOZAPINE [Suspect]
     Indication: SCHIZOAFFECTIVE DISORDER
     Dosage: 50MG HS ORAL
     Route: 048
     Dates: start: 20040302
  2. CLOZAPINE [Suspect]
     Indication: SCHIZOAFFECTIVE DISORDER
     Dosage: 100MG HS ORAL
     Route: 048
     Dates: start: 20040302
  3. VENLAFAXINE HCL [Concomitant]
  4. RISPERIDONE [Concomitant]
  5. HYDROXYZINE PAMOATE [Concomitant]
  6. CONJUGATED ESTROGENS [Concomitant]
  7. ASPIRIN [Concomitant]
  8. GEMFIBROZIL [Concomitant]
  9. DOCUSATE [Concomitant]
  10. GABAPENTIN [Concomitant]
  11. LOPERAMIDE HCL [Concomitant]
  12. NITROGLYCERIN [Concomitant]
  13. PSYLLIUM [Concomitant]
  14. LEVETIRACETAM [Concomitant]
  15. TOLTERODINE LA [Concomitant]
  16. PANTOPRAZOLE [Concomitant]

REACTIONS (1)
  - CHEST PAIN [None]
